FAERS Safety Report 8060615-9 (Version None)
Quarter: 2012Q2

REPORT INFORMATION
  Report Type: 
  Country: None (occurrence: None)
  Receive Date: 20120119
  Receipt Date: 20120119
  Transmission Date: 20120825
  Serious: No
  Sender: FDA-Public Use
  Company Number: None

PATIENT
  Age: 39 Year
  Sex: Male

DRUGS (3)
  1. RIBAVIRIN [Suspect]
     Indication: HEPATITIS C
     Dosage: BID PO
     Route: 048
     Dates: start: 20110421, end: 20111027
  2. GEMFIBROZIL [Concomitant]
  3. PEG-INTRON [Suspect]
     Dosage: WEEKLY SUBCUTANEOUS
     Route: 058

REACTIONS (2)
  - RASH GENERALISED [None]
  - ERYTHEMA MULTIFORME [None]
